FAERS Safety Report 15994692 (Version 14)
Quarter: 2022Q4

REPORT INFORMATION
  Report Type: Report from Study
  Country: CA (occurrence: CA)
  Receive Date: 20190222
  Receipt Date: 20221102
  Transmission Date: 20230113
  Serious: Yes (Other)
  Sender: FDA-Public Use
  Company Number: PHHY2017CA027401

PATIENT
  Age: 55 Year
  Sex: Male

DRUGS (5)
  1. SANDOSTATIN LAR DEPOT [Suspect]
     Active Substance: OCTREOTIDE ACETATE
     Indication: Pancreatic neuroendocrine tumour
     Dosage: 30 MG, Q4W (EVERY 4 WEEKS)
     Route: 030
     Dates: start: 20150807, end: 20170317
  2. SANDOSTATIN LAR DEPOT [Suspect]
     Active Substance: OCTREOTIDE ACETATE
     Indication: Neuroendocrine carcinoma metastatic
     Dosage: 60 MG, Q4W (EVERY 4 WEEKS)
     Route: 030
     Dates: start: 20150807
  3. SANDOSTATIN LAR DEPOT [Suspect]
     Active Substance: OCTREOTIDE ACETATE
     Dosage: 60 MG, QMO
     Route: 030
     Dates: start: 20170413
  4. SANDOSTATIN LAR DEPOT [Suspect]
     Active Substance: OCTREOTIDE ACETATE
     Dosage: 60 MG, Q4W (EVERY 4 WEEKS)
     Route: 030
     Dates: start: 20181123
  5. SANDOSTATIN LAR DEPOT [Suspect]
     Active Substance: OCTREOTIDE ACETATE
     Dosage: 90 MG, Q4W
     Route: 030
     Dates: start: 20150807

REACTIONS (20)
  - Blood pressure increased [Unknown]
  - Nephrolithiasis [Recovered/Resolved]
  - Renal pain [Unknown]
  - Metastases to liver [Unknown]
  - Heart rate decreased [Unknown]
  - Lethargy [Unknown]
  - Arthralgia [Unknown]
  - Muscle tightness [Unknown]
  - Stress [Unknown]
  - Nasopharyngitis [Recovered/Resolved]
  - Ear pain [Unknown]
  - Oropharyngeal pain [Recovered/Resolved]
  - Nasal congestion [Recovered/Resolved]
  - Memory impairment [Unknown]
  - Headache [Recovered/Resolved]
  - Abdominal pain upper [Unknown]
  - Malaise [Unknown]
  - Pain [Unknown]
  - Needle issue [Unknown]
  - Incorrect dose administered [Unknown]

NARRATIVE: CASE EVENT DATE: 20170127
